FAERS Safety Report 4406384-2 (Version None)
Quarter: 2004Q3

REPORT INFORMATION
  Report Type: 
  Country: None (occurrence: None)
  Receive Date: 20040723
  Receipt Date: 20030711
  Transmission Date: 20050211
  Serious: No
  Sender: FDA-Public Use
  Company Number: US-GLAXOSMITHKLINE-A0416386A

PATIENT
  Sex: Male

DRUGS (1)
  1. AVANDIA [Suspect]
     Indication: INSULIN RESISTANCE
     Dosage: 4MG PER DAY
     Route: 048
     Dates: start: 20030707

REACTIONS (3)
  - HUNGER [None]
  - HYPOGLYCAEMIA [None]
  - IRRITABILITY [None]
